FAERS Safety Report 24135901 (Version 1)
Quarter: 2024Q3

REPORT INFORMATION
  Report Type: Other
  Country: IT (occurrence: IT)
  Receive Date: 20240725
  Receipt Date: 20240725
  Transmission Date: 20241016
  Serious: Yes (Life-Threatening, Hospitalization)
  Sender: B BRAUN
  Company Number: IT-B.Braun Medical Inc.-2159564

PATIENT
  Age: 62 Year
  Sex: Female

DRUGS (3)
  1. HEPARIN SODIUM IN DEXTROSE [Suspect]
     Active Substance: HEPARIN SODIUM
     Indication: Anticoagulant therapy
  2. ASPIRIN [Suspect]
     Active Substance: ASPIRIN
  3. TICAGRELOR [Suspect]
     Active Substance: TICAGRELOR

REACTIONS (2)
  - Haemorrhage intracranial [Unknown]
  - Drug ineffective [Unknown]
